FAERS Safety Report 18224793 (Version 1)
Quarter: 2020Q3

REPORT INFORMATION
  Report Type: Spontaneous
  Country: DE (occurrence: DE)
  Receive Date: 20200903
  Receipt Date: 20200903
  Transmission Date: 20201103
  Serious: Yes (Other)
  Sender: FDA-Public Use
  Company Number: DE-AMGEN-DEUNI2020140121

PATIENT
  Age: 77 Year
  Sex: Female

DRUGS (3)
  1. TERIPARATIDE [Suspect]
     Active Substance: TERIPARATIDE
     Indication: OSTEOPOROSIS
     Dosage: UNK
     Route: 058
     Dates: start: 20190315
  2. CALCIUM CITRATE [Concomitant]
     Active Substance: CALCIUM CITRATE
     Indication: PRODUCT USED FOR UNKNOWN INDICATION
  3. PROLIA [Suspect]
     Active Substance: DENOSUMAB
     Indication: RESORPTION BONE DECREASED
     Dosage: UNK UNK, OTHER (EVERY FIVE MONTHS)
     Route: 065

REACTIONS (6)
  - Pathological fracture [Unknown]
  - Inappropriate schedule of product administration [Unknown]
  - Hypotonia [Not Recovered/Not Resolved]
  - Blood calcium increased [Not Recovered/Not Resolved]
  - Tooth disorder [Not Recovered/Not Resolved]
  - Resorption bone increased [Not Recovered/Not Resolved]

NARRATIVE: CASE EVENT DATE: 201912
